FAERS Safety Report 8439316 (Version 2)
Quarter: 2013Q2

REPORT INFORMATION
  Report Type: Spontaneous
  Country: US (occurrence: None)
  Receive Date: 20120104
  Receipt Date: 20120508
  Transmission Date: 20140414
  Serious: Yes (Other)
  Sender: FDA-Public Use
  Company Number: 2011HGS-002771

PATIENT
  Age: 48 Year
  Sex: Female
  Weight: 73.48 kg

DRUGS (15)
  1. BENLYSTA [Suspect]
     Indication: SYSTEMIC LUPUS ERYTHEMATOSUS
     Dosage: 1 IN 28 D, INTRAVENOUS DRIP
     Route: 041
  2. VITAMIN B12 [Concomitant]
  3. PLAQUENIL [Concomitant]
  4. CELEBREX (CELECOXIB)(CELECOXIB) [Concomitant]
  5. LIPITOR [Concomitant]
  6. ZYRTEC [Concomitant]
  7. VITAMIN B3 (NICOTINIC ACID) [Concomitant]
  8. VITAMIN A [Concomitant]
  9. TYLENOL ARTHRITIS (PARACETAMOL) [Concomitant]
  10. ONE A DAY MENOPAUSAL WOMEN^S VITAMIN (ONE-A-DAY /00156401/) (ERGOCALCIFEROL, ASCORBIC ACID, PYRIDOXINE HYDROCHLORIDE, CYANOCOBALAMIN, RETINOL, RIBOFLAVIN, NICOTINAMIDE, THIAMINE MONITRATE) [Concomitant]
  11. FISH OIL / OMEGA-3 (FISH OIL)  (FISH OIL) [Concomitant]
  12. COQ10 (UBIDECARENONE) [Concomitant]
  13. NIACIN [Concomitant]
  14. ECHINACEA (ECHINACHEA PURPUREA) (ECHINACHEA PURPUREA) [Concomitant]
  15. LUTEIN (XANTOFYL)  (XANTOFYL) [Concomitant]

REACTIONS (3)
  - RHINORRHOEA [None]
  - DYSPHAGIA [None]
  - Cough [None]
